FAERS Safety Report 12914184 (Version 2)
Quarter: 2016Q4

REPORT INFORMATION
  Report Type: Report from Study
  Country: JP (occurrence: JP)
  Receive Date: 20161106
  Receipt Date: 20161209
  Transmission Date: 20170207
  Serious: Yes (Hospitalization)
  Sender: FDA-Public Use
  Company Number: JP-ASTRAZENECA-2016SF15406

PATIENT
  Age: 25851 Day
  Sex: Male
  Weight: 74 kg

DRUGS (15)
  1. MAGNESIUM OXIDE. [Concomitant]
     Active Substance: MAGNESIUM OXIDE
     Dosage: 330.0MG AS REQUIRED
     Route: 048
     Dates: start: 20151225
  2. IRESSA [Suspect]
     Active Substance: GEFITINIB
     Indication: NON-SMALL CELL LUNG CANCER METASTATIC
     Route: 048
     Dates: start: 20150417, end: 20151103
  3. IRESSA [Suspect]
     Active Substance: GEFITINIB
     Indication: NON-SMALL CELL LUNG CANCER METASTATIC
     Route: 048
     Dates: start: 20151111, end: 20161028
  4. CLOBETASOL PROPIONATE. [Concomitant]
     Active Substance: CLOBETASOL PROPIONATE
     Dosage: PRN
     Route: 003
     Dates: start: 20150821
  5. CARPRONIUM CHLORIDE HYDRATE [Concomitant]
     Dosage: PRN
     Route: 003
     Dates: start: 20150904
  6. MINOCYCLINEHYDROCHLORIDE [Concomitant]
     Dosage: 100.0MG AS REQUIRED
     Route: 048
     Dates: start: 20160314
  7. CROTAMITON/HYDROCORTISONE [Concomitant]
     Dosage: PRN
     Route: 003
     Dates: start: 20150423
  8. PURIFIED SODIUMHYALURONATE [Concomitant]
     Dosage: PRN
     Route: 047
     Dates: start: 20150430
  9. BETAMETHASONE VALERATE/GENTAMICIN SULFATE [Concomitant]
     Dosage: PRN
     Route: 003
     Dates: start: 20150803
  10. HEPARINOID [Concomitant]
     Active Substance: CHONDROITIN SULFATE (BOVINE)
     Dosage: PRN
     Route: 003
     Dates: start: 20150528
  11. BETAMETASONE VALERATE [Concomitant]
     Dosage: PRN
     Route: 003
     Dates: start: 20150803
  12. TEPRENONE [Concomitant]
     Active Substance: TEPRENONE
     Route: 048
     Dates: start: 20151113
  13. FAMOTIDINE. [Concomitant]
     Active Substance: FAMOTIDINE
     Route: 048
     Dates: start: 20151113
  14. LEVOCETIRIZINE HYDROCHLORIDE [Concomitant]
     Active Substance: LEVOCETIRIZINE HYDROCHLORIDE
     Route: 048
     Dates: start: 20160314
  15. ETIZOLAM [Concomitant]
     Active Substance: ETIZOLAM
     Dosage: 0.5MG AS REQUIRED
     Route: 048
     Dates: start: 20150319

REACTIONS (1)
  - Aortic dissection [Recovering/Resolving]

NARRATIVE: CASE EVENT DATE: 20161029
